FAERS Safety Report 8521676 (Version 2)
Quarter: 2012Q4

REPORT INFORMATION
  Report Type: 
  Country: US (occurrence: US)
  Receive Date: 20120419
  Receipt Date: 20121019
  Transmission Date: 20130627
  Serious: No
  Sender: FDA-Public Use
  Company Number: US-BRISTOL-MYERS SQUIBB COMPANY-16356396

PATIENT
  Age: 49 Year
  Sex: Male

DRUGS (2)
  1. YERVOY [Suspect]
     Indication: METASTATIC MALIGNANT MELANOMA
     Dosage: Therapy dares:08Nov11,30Nov11,21Dec2011
     Route: 042
     Dates: start: 20111018
  2. OXYCODONE [Concomitant]

REACTIONS (2)
  - Hypophysitis [Unknown]
  - Thyroid function test abnormal [Recovering/Resolving]
